FAERS Safety Report 16193143 (Version 1)
Quarter: 2019Q2

REPORT INFORMATION
  Report Type: Spontaneous
  Country: IT (occurrence: IT)
  Receive Date: 20190413
  Receipt Date: 20190413
  Transmission Date: 20190711
  Serious: Yes (Other)
  Sender: FDA-Public Use
  Company Number: IT-KADMON PHARMACEUTICALS, LLC-KAD201904-000237

PATIENT
  Age: 55 Year
  Sex: Female

DRUGS (3)
  1. PEGINTERFERON ALFA-2A. [Suspect]
     Active Substance: PEGINTERFERON ALFA-2A
     Dosage: 180 MCG
     Dates: start: 2014
  2. PEGINTERFERON ALFA-2A. [Suspect]
     Active Substance: PEGINTERFERON ALFA-2A
     Indication: CHRONIC HEPATITIS C
     Dosage: 180 MCG
  3. RIBAVIRIN. [Suspect]
     Active Substance: RIBAVIRIN
     Indication: CHRONIC HEPATITIS C
     Route: 048
     Dates: start: 2014

REACTIONS (3)
  - Psoriatic arthropathy [Unknown]
  - Therapy partial responder [Unknown]
  - Psoriasis [Unknown]
